FAERS Safety Report 18118887 (Version 14)
Quarter: 2023Q2

REPORT INFORMATION
  Report Type: Report from Study
  Country: CA (occurrence: CA)
  Receive Date: 20200806
  Receipt Date: 20230508
  Transmission Date: 20230721
  Serious: Yes (Other)
  Sender: FDA-Public Use
  Company Number: CA-TAKEDA-2020TUS002807

PATIENT
  Age: 46 Year
  Sex: Female

DRUGS (20)
  1. VEDOLIZUMAB [Suspect]
     Active Substance: VEDOLIZUMAB
     Indication: Crohn^s disease
     Dosage: 300 MILLIGRAM
     Route: 042
     Dates: start: 20191003
  2. VEDOLIZUMAB [Suspect]
     Active Substance: VEDOLIZUMAB
     Dosage: 300 MILLIGRAM, Q4WEEKS
     Route: 042
     Dates: start: 20200115
  3. VEDOLIZUMAB [Suspect]
     Active Substance: VEDOLIZUMAB
     Dosage: 300 MILLIGRAM, Q4WEEKS
     Route: 042
  4. VEDOLIZUMAB [Suspect]
     Active Substance: VEDOLIZUMAB
     Dosage: 300 MILLIGRAM, Q4WEEKS
     Route: 042
  5. VEDOLIZUMAB [Suspect]
     Active Substance: VEDOLIZUMAB
     Dosage: 300 MILLIGRAM, Q4WEEKS
     Route: 042
  6. VEDOLIZUMAB [Suspect]
     Active Substance: VEDOLIZUMAB
     Dosage: 300 MILLIGRAM, Q4WEEKS
     Route: 042
  7. VEDOLIZUMAB [Suspect]
     Active Substance: VEDOLIZUMAB
     Dosage: 300 MILLIGRAM
     Route: 042
     Dates: start: 20200427
  8. VEDOLIZUMAB [Suspect]
     Active Substance: VEDOLIZUMAB
     Dosage: 300 MILLIGRAM
     Route: 042
     Dates: start: 20201209
  9. VEDOLIZUMAB [Suspect]
     Active Substance: VEDOLIZUMAB
     Dosage: 300 MILLIGRAM
     Route: 042
  10. VEDOLIZUMAB [Suspect]
     Active Substance: VEDOLIZUMAB
     Dosage: 300 MILLIGRAM
     Route: 042
  11. VEDOLIZUMAB [Suspect]
     Active Substance: VEDOLIZUMAB
     Dosage: 300 MILLIGRAM
     Route: 042
  12. VEDOLIZUMAB [Suspect]
     Active Substance: VEDOLIZUMAB
     Dosage: 300 MILLIGRAM
     Route: 042
  13. VEDOLIZUMAB [Suspect]
     Active Substance: VEDOLIZUMAB
     Dosage: 300 MILLIGRAM
     Route: 042
  14. VEDOLIZUMAB [Suspect]
     Active Substance: VEDOLIZUMAB
     Dosage: 300 MILLIGRAM, Q4WEEKS
     Route: 042
  15. PREDNISONE [Concomitant]
     Active Substance: PREDNISONE
     Dosage: 20 MILLIGRAM, QD
     Route: 048
  16. ERTAPENEM [Concomitant]
     Active Substance: ERTAPENEM
     Indication: Abscess limb
     Dosage: 1 GRAM, QD
     Dates: start: 20220126
  17. METRONIDAZOLE [Concomitant]
     Active Substance: METRONIDAZOLE
     Dosage: 500 MILLIGRAM, BID
  18. IRON [Concomitant]
     Active Substance: IRON
     Dosage: UNK
  19. ZIPRAX [Concomitant]
     Dosage: 500 MILLIGRAM
  20. CALCIUM [Concomitant]
     Active Substance: CALCIUM
     Dosage: UNK

REACTIONS (11)
  - Abscess limb [Not Recovered/Not Resolved]
  - Vaginal abscess [Not Recovered/Not Resolved]
  - Haematochezia [Unknown]
  - Rectal abscess [Not Recovered/Not Resolved]
  - Anal abscess [Not Recovered/Not Resolved]
  - Faeces soft [Unknown]
  - Off label use [Unknown]
  - Pain of skin [Not Recovered/Not Resolved]
  - Blister [Not Recovered/Not Resolved]
  - Skin discomfort [Not Recovered/Not Resolved]
  - Pruritus [Not Recovered/Not Resolved]

NARRATIVE: CASE EVENT DATE: 20200115
